FAERS Safety Report 7180599-5 (Version None)
Quarter: 2010Q4

REPORT INFORMATION
  Report Type: 
  Country: None (occurrence: None)
  Receive Date: 20101221
  Receipt Date: 20101215
  Transmission Date: 20110411
  Serious: Yes (Hospitalization, Other)
  Sender: FDA-Public Use
  Company Number: CH-PFIZER INC-2010156407

PATIENT
  Age: 66 Year
  Sex: Male
  Weight: 75 kg

DRUGS (7)
  1. CHAMPIX [Suspect]
     Indication: SMOKING CESSATION THERAPY
     Dosage: 1 MG, 2X/DAY
     Route: 048
     Dates: start: 20101025, end: 20101118
  2. CRESTOR [Concomitant]
     Dosage: UNK
     Route: 048
     Dates: start: 20090101
  3. CONCOR [Concomitant]
     Dosage: 10 MG, 1X/DAY
     Route: 048
  4. DILZEM-RR [Concomitant]
     Dosage: 180 MG, 1X/DAY
     Route: 048
  5. SPIRIVA [Concomitant]
     Dosage: UNK
     Route: 055
  6. NICORETTE [Concomitant]
     Dosage: 2 MG, 3X/DAY
  7. NICORETTE [Concomitant]

REACTIONS (6)
  - ABDOMINAL PAIN [None]
  - HYPERTENSION [None]
  - ILEUS [None]
  - NAUSEA [None]
  - TACHYCARDIA [None]
  - VOMITING [None]
